FAERS Safety Report 17778653 (Version 7)
Quarter: 2020Q3

REPORT INFORMATION
  Report Type: Report from Study
  Country: PL (occurrence: PL)
  Receive Date: 20200513
  Receipt Date: 20200918
  Transmission Date: 20201102
  Serious: Yes (Life-Threatening, Hospitalization)
  Sender: FDA-Public Use
  Company Number: PL-EISAI MEDICAL RESEARCH-EC-2020-074558

PATIENT
  Age: 66 Year
  Sex: Male
  Weight: 56 kg

DRUGS (8)
  1. PLACEBO [Suspect]
     Active Substance: UNSPECIFIED INGREDIENT
     Indication: HEPATOCELLULAR CARCINOMA
     Route: 041
     Dates: start: 20200311, end: 20200401
  2. LISINOPRIL/LISINORATIO [Concomitant]
     Dates: start: 20200318, end: 20200506
  3. BATRAFEN [Concomitant]
     Dates: start: 20200304, end: 20200506
  4. AMLOPIN [Concomitant]
     Dates: start: 20200322, end: 20200719
  5. INDAPEN [Concomitant]
     Active Substance: INDAPAMIDE
     Dates: start: 20200326, end: 202005
  6. LENVATINIB [Suspect]
     Active Substance: LENVATINIB
     Indication: HEPATOCELLULAR CARCINOMA
     Route: 048
     Dates: start: 20200311, end: 20200427
  7. PLACEBO [Suspect]
     Active Substance: UNSPECIFIED INGREDIENT
     Route: 041
     Dates: start: 20200424, end: 20200424
  8. LISINOPRIL/LISINORATIO [Concomitant]
     Dates: start: 202005

REACTIONS (1)
  - Ischaemic stroke [Recovered/Resolved with Sequelae]

NARRATIVE: CASE EVENT DATE: 20200506
